FAERS Safety Report 14417643 (Version 2)
Quarter: 2018Q1

REPORT INFORMATION
  Report Type: Spontaneous
  Country: US (occurrence: US)
  Receive Date: 20180122
  Receipt Date: 20180223
  Transmission Date: 20180509
  Serious: No
  Sender: FDA-Public Use
  Company Number: US-GLAXOSMITHKLINE-US2018GSK007310

PATIENT
  Age: 41 Year
  Sex: Female
  Weight: 68.27 kg

DRUGS (1)
  1. SUMATRIPTAN (SUMATRIPTAN SUCCINATE) SOLUTION FOR INJECTION IN PRE-FILL [Suspect]
     Active Substance: SUMATRIPTAN
     Indication: MIGRAINE
     Dosage: 6 MG, UNK

REACTIONS (4)
  - Gastroenteritis viral [Recovered/Resolved]
  - Vomiting [Recovered/Resolved]
  - Migraine [Recovered/Resolved]
  - Device malfunction [Unknown]

NARRATIVE: CASE EVENT DATE: 20171202
